FAERS Safety Report 6820688-5 (Version None)
Quarter: 2010Q3

REPORT INFORMATION
  Report Type: 
  Country: None (occurrence: None)
  Receive Date: 20100707
  Receipt Date: 20100624
  Transmission Date: 20110219
  Serious: No
  Sender: FDA-Public Use
  Company Number: FR-ELI_LILLY_AND_COMPANY-FR201006007045

PATIENT
  Age: 83 Year
  Sex: Male

DRUGS (4)
  1. CYMBALTA [Suspect]
     Dosage: 60 MG, DAILY (1/D)
     Route: 048
  2. NEXIUM [Concomitant]
     Dosage: UNK, UNKNOWN
     Route: 048
  3. DOLIPRANE [Concomitant]
     Dosage: UNK, UNKNOWN
     Route: 048
  4. DUPHALAC [Concomitant]
     Dosage: UNK, UNKNOWN
     Route: 048

REACTIONS (2)
  - BACK PAIN [None]
  - CHOLESTATIC LIVER INJURY [None]
